FAERS Safety Report 24983227 (Version 1)
Quarter: 2025Q1

REPORT INFORMATION
  Report Type: Spontaneous
  Country: PL (occurrence: PL)
  Receive Date: 20250218
  Receipt Date: 20250218
  Transmission Date: 20250408
  Serious: Yes (Hospitalization)
  Sender: AMGEN
  Company Number: PL-AMGEN-POLSP2025029518

PATIENT
  Age: 72 Year
  Sex: Female

DRUGS (1)
  1. ADALIMUMAB [Suspect]
     Active Substance: ADALIMUMAB
     Indication: Rheumatoid arthritis
     Route: 065

REACTIONS (3)
  - Renal impairment [Unknown]
  - Disseminated tuberculosis [Unknown]
  - Drug ineffective [Unknown]
